FAERS Safety Report 6047284-4 (Version None)
Quarter: 2009Q1

REPORT INFORMATION
  Report Type: 
  Country: None (occurrence: None)
  Receive Date: 20090122
  Receipt Date: 20090109
  Transmission Date: 20090719
  Serious: Yes (Other)
  Sender: FDA-Public Use
  Company Number: US-ELI_LILLY_AND_COMPANY-US200901001541

PATIENT
  Sex: Male

DRUGS (7)
  1. CYMBALTA [Suspect]
     Indication: PAIN MANAGEMENT
     Dosage: 60 MG, 2/D
     Dates: start: 20070101
  2. CYMBALTA [Suspect]
     Dosage: 60 MG, DAILY (1/D)
  3. PLAVIX [Concomitant]
     Dosage: 75 MG, DAILY (1/D)
  4. IMDUR [Concomitant]
     Dosage: 60 MG, UNK
  5. DIGOXIN [Concomitant]
     Dosage: 0.125 MG, UNK
  6. FOLIC ACID [Concomitant]
     Dosage: 1 MG, UNK
  7. ASPIRIN [Concomitant]

REACTIONS (1)
  - HEPATIC CANCER STAGE I [None]
